FAERS Safety Report 10674566 (Version 2)
Quarter: 2014Q4

REPORT INFORMATION
  Report Type: Report from Study
  Country: US (occurrence: US)
  Receive Date: 20141224
  Receipt Date: 20141224
  Transmission Date: 20150529
  Serious: Yes (Hospitalization, Other)
  Sender: FDA-Public Use
  Company Number: US-GILEAD-2014-0125025

PATIENT
  Age: 62 Year
  Sex: Male

DRUGS (1)
  1. IDELALISIB [Suspect]
     Active Substance: IDELALISIB
     Indication: ACUTE LYMPHOCYTIC LEUKAEMIA
     Dosage: 150 MG, UNK
     Route: 048
     Dates: start: 20140830

REACTIONS (5)
  - Toxicity to various agents [Unknown]
  - Pyrexia [Unknown]
  - Exfoliative rash [Unknown]
  - Off label use [Unknown]
  - Diarrhoea [Unknown]
